FAERS Safety Report 12508806 (Version 2)
Quarter: 2016Q3

REPORT INFORMATION
  Report Type: Report from Study
  Country: US (occurrence: US)
  Receive Date: 20160629
  Receipt Date: 20160708
  Transmission Date: 20161109
  Serious: Yes (Death, Hospitalization, Other)
  Sender: FDA-Public Use
  Company Number: US-ACTELION-A-US2016-130300

PATIENT
  Age: 62 Year
  Sex: Female

DRUGS (1)
  1. VELETRI [Suspect]
     Active Substance: EPOPROSTENOL
     Indication: PULMONARY HYPERTENSION
     Dosage: 5 NG/KG, PER MIN
     Route: 042
     Dates: start: 20151111, end: 20160626

REACTIONS (15)
  - Paracentesis [Unknown]
  - Weight increased [Unknown]
  - Death [Fatal]
  - Fluid retention [Unknown]
  - Blood glucose increased [Unknown]
  - Catheter site scab [Unknown]
  - Abdominal distension [Unknown]
  - Musculoskeletal pain [Unknown]
  - Dyspnoea [Unknown]
  - Fatigue [Unknown]
  - Ascites [Unknown]
  - Weight decreased [Unknown]
  - Adverse reaction [Unknown]
  - Catheter site erythema [Unknown]
  - Catheter site pruritus [Unknown]

NARRATIVE: CASE EVENT DATE: 20160626
